FAERS Safety Report 14009195 (Version 1)
Quarter: 2017Q3

REPORT INFORMATION
  Report Type: Spontaneous
  Country: US (occurrence: US)
  Receive Date: 20170925
  Receipt Date: 20170925
  Transmission Date: 20171128
  Serious: No
  Sender: FDA-Public Use
  Company Number: US-PARI RESPIRATORY EQUIPMENT, INC.-2017PAR00016

PATIENT
  Age: 25 Year
  Sex: Male

DRUGS (3)
  1. PROMIXIN [Concomitant]
     Active Substance: COLISTIMETHATE SODIUM
  2. PULMOZYME [Concomitant]
     Active Substance: DORNASE ALFA
  3. KITABIS PAK [Suspect]
     Active Substance: TOBRAMYCIN
     Indication: CYSTIC FIBROSIS
     Dosage: 300 MG, 2X/DAY
     Route: 055
     Dates: start: 201706

REACTIONS (2)
  - Device issue [Unknown]
  - Cystic fibrosis [Unknown]

NARRATIVE: CASE EVENT DATE: 201706
